FAERS Safety Report 16078107 (Version 1)
Quarter: 2019Q1

REPORT INFORMATION
  Report Type: Spontaneous
  Country: ES (occurrence: ES)
  Receive Date: 20190315
  Receipt Date: 20190315
  Transmission Date: 20190418
  Serious: Yes (Other)
  Sender: FDA-Public Use
  Company Number: ES-EISAI MEDICAL RESEARCH-EC-2019-052820

PATIENT
  Age: 3 Year
  Sex: Female
  Weight: 14 kg

DRUGS (6)
  1. PERAMPANEL [Suspect]
     Active Substance: PERAMPANEL
     Dosage: UP-TITRATION (UNKNOWN DOSE)
     Route: 048
     Dates: start: 2017, end: 2017
  2. PIRACETAM [Concomitant]
     Active Substance: PIRACETAM
     Indication: MYOCLONIC EPILEPSY
     Dates: start: 201709, end: 201808
  3. CLOBAZAM. [Concomitant]
     Active Substance: CLOBAZAM
     Indication: MYOCLONIC EPILEPSY
     Dates: start: 201708, end: 201801
  4. PERAMPANEL [Suspect]
     Active Substance: PERAMPANEL
     Indication: MYOCLONIC EPILEPSY
     Dosage: UNKNOWN
     Route: 048
     Dates: start: 20171025, end: 2017
  5. BRIVARACETAM [Concomitant]
     Active Substance: BRIVARACETAM
     Indication: MYOCLONIC EPILEPSY
     Dates: start: 20171012, end: 201801
  6. PERAMPANEL [Suspect]
     Active Substance: PERAMPANEL
     Route: 048
     Dates: start: 2017, end: 20171110

REACTIONS (2)
  - Petit mal epilepsy [Recovered/Resolved]
  - Product use issue [Recovered/Resolved]

NARRATIVE: CASE EVENT DATE: 201711
